FAERS Safety Report 5716517-3 (Version None)
Quarter: 2008Q2

REPORT INFORMATION
  Report Type: 
  Country: None (occurrence: None)
  Receive Date: 20080424
  Receipt Date: 20080311
  Transmission Date: 20081010
  Serious: Yes (Life-Threatening, Hospitalization)
  Sender: FDA-Public Use
  Company Number: ES-WYE-H02674308

PATIENT
  Age: 74 Year
  Sex: Female

DRUGS (8)
  1. PANTOPRAZOLE SODIUM [Suspect]
     Indication: GASTRITIS
     Route: 048
     Dates: start: 20050101
  2. PANTOPRAZOLE SODIUM [Interacting]
     Indication: PROPHYLAXIS
  3. DIGOXIN [Concomitant]
     Dosage: UNKNOWN
  4. ALPRAZOLAM [Concomitant]
     Dosage: UNKNOWN
  5. ENALAPRIL MALEATE [Concomitant]
     Dosage: UNKNOWN
  6. SINTROM [Interacting]
     Indication: THROMBOSIS
     Dates: start: 20050101, end: 20071007
  7. SINTROM [Interacting]
     Indication: PROPHYLAXIS
  8. FLUOXETINE [Interacting]
     Indication: DEPRESSION
     Route: 048
     Dates: start: 19970101

REACTIONS (2)
  - CEREBELLAR HAEMATOMA [None]
  - DRUG INTERACTION [None]
